FAERS Safety Report 15395320 (Version 1)
Quarter: 2018Q3

REPORT INFORMATION
  Report Type: Spontaneous
  Country: US (occurrence: US)
  Receive Date: 20180911
  Receipt Date: 20180911
  Transmission Date: 20181010
  Serious: Yes (Disabling)
  Sender: FDA-Public Use
  Company Number: None

PATIENT
  Age: 54 Year
  Sex: Male
  Weight: 99 kg

DRUGS (5)
  1. SERTRALINE [Concomitant]
     Active Substance: SERTRALINE HYDROCHLORIDE
  2. XANAX [Concomitant]
     Active Substance: ALPRAZOLAM
  3. CIPROFLAXIN [Suspect]
     Active Substance: CIPROFLOXACIN
     Indication: DIVERTICULITIS
     Dosage: ?          QUANTITY:1 TABLET(S);?
     Route: 048
  4. MERTAZAPINE [Concomitant]
     Active Substance: MIRTAZAPINE
  5. LEVAQUIN [Suspect]
     Active Substance: LEVOFLOXACIN

REACTIONS (4)
  - Depression [None]
  - Anxiety [None]
  - Loss of employment [None]
  - Housebound [None]

NARRATIVE: CASE EVENT DATE: 20170513
